FAERS Safety Report 4778736-2 (Version None)
Quarter: 2005Q3

REPORT INFORMATION
  Report Type: 
  Country: None (occurrence: None)
  Receive Date: 20050926
  Receipt Date: 20050914
  Transmission Date: 20060218
  Serious: Yes (Death, Hospitalization)
  Sender: FDA-Public Use
  Company Number: US-BRISTOL-MYERS SQUIBB COMPANY-13111133

PATIENT
  Age: 71 Year
  Sex: Male

DRUGS (5)
  1. TEQUIN [Suspect]
     Indication: URINARY TRACT INFECTION
     Route: 042
     Dates: start: 20041201
  2. ATENOLOL [Concomitant]
  3. ALKA-SELTZER PLUS [Concomitant]
     Dosage: TAKEN 2 DAYS PRIOR TO GATIFLOXACIN.
  4. K-DUR 10 [Concomitant]
  5. ROBITUSSIN [Concomitant]

REACTIONS (7)
  - HYPOKALAEMIA [None]
  - MENTAL STATUS CHANGES [None]
  - MULTI-ORGAN FAILURE [None]
  - RASH [None]
  - RENAL FAILURE ACUTE [None]
  - RESPIRATORY DISTRESS [None]
  - TOXIC EPIDERMAL NECROLYSIS [None]
